FAERS Safety Report 23130224 (Version 9)
Quarter: 2024Q3

REPORT INFORMATION
  Report Type: Spontaneous
  Country: US (occurrence: US)
  Receive Date: 20231031
  Receipt Date: 20240820
  Transmission Date: 20241016
  Serious: No
  Sender: BRISTOL MYERS SQUIBB
  Company Number: US-BRISTOL-MYERS SQUIBB COMPANY-2023-155151

PATIENT
  Age: 61 Year
  Sex: Female

DRUGS (2)
  1. REVLIMID [Suspect]
     Active Substance: LENALIDOMIDE
     Indication: Follicular lymphoma
     Route: 048
  2. REVLIMID [Suspect]
     Active Substance: LENALIDOMIDE
     Route: 048
     Dates: start: 20231013

REACTIONS (7)
  - Muscle spasms [Unknown]
  - Rash [Unknown]
  - Diarrhoea [Recovering/Resolving]
  - Cough [Unknown]
  - Constipation [Recovering/Resolving]
  - Fatigue [Unknown]
  - Product storage error [Unknown]
